FAERS Safety Report 8614643-2 (Version None)
Quarter: 2012Q3

REPORT INFORMATION
  Report Type: 
  Country: None (occurrence: None)
  Receive Date: 20120823
  Receipt Date: 20120813
  Transmission Date: 20120928
  Serious: Yes (Hospitalization, Other)
  Sender: FDA-Public Use
  Company Number: US-009507513-0907USA02549

PATIENT

DRUGS (10)
  1. NAVANE [Concomitant]
     Indication: DEPRESSION
     Dosage: 2 MG, QD
     Dates: start: 19950501
  2. ZOLOFT [Concomitant]
     Indication: DEPRESSION
     Dosage: 100 MG, QD
     Dates: start: 19950501
  3. MIDRIN [Concomitant]
     Indication: MIGRAINE
     Dosage: UNK UNK, PRN
  4. FOSAMAX [Suspect]
     Dosage: 10 MG, UNK
     Route: 048
     Dates: start: 19981201, end: 20070101
  5. FOSAMAX [Suspect]
     Dosage: 70 MG, QW
     Route: 048
     Dates: start: 20080101, end: 20080701
  6. NAVANE [Concomitant]
     Indication: ANXIETY
  7. FOSAMAX [Suspect]
     Indication: OSTEOPENIA
     Dosage: 10 MG, UNK
     Route: 048
     Dates: start: 19951101, end: 19981101
  8. FOSAMAX [Suspect]
     Dosage: 70 MG, UNK
     Route: 048
     Dates: start: 20061222, end: 20080813
  9. FOSAMAX [Suspect]
     Dosage: 70 MG, UNK
     Route: 048
     Dates: start: 20021203, end: 20021230
  10. ESTROGENS (UNSPECIFIED) [Concomitant]
     Dates: start: 19900101

REACTIONS (35)
  - OSTEOPOROSIS [None]
  - LUNG NEOPLASM [None]
  - DYSTHYMIC DISORDER [None]
  - BURSITIS [None]
  - RADICULAR SYNDROME [None]
  - BREAST CANCER [None]
  - BLOOD CHOLESTEROL INCREASED [None]
  - GINGIVAL PAIN [None]
  - INFECTION [None]
  - FEMUR FRACTURE [None]
  - PANCREATIC CYST [None]
  - THYROID NEOPLASM [None]
  - HYPERLIPIDAEMIA [None]
  - RIB FRACTURE [None]
  - HYPOAESTHESIA [None]
  - DENTAL CARIES [None]
  - ORAL HERPES [None]
  - LACRIMATION DECREASED [None]
  - TENDONITIS [None]
  - INFLUENZA LIKE ILLNESS [None]
  - RADICULITIS [None]
  - PERIODONTITIS [None]
  - DEVICE FAILURE [None]
  - FRACTURE NONUNION [None]
  - BASAL CELL CARCINOMA [None]
  - HAEMATURIA [None]
  - RASH [None]
  - DYSPHONIA [None]
  - ATELECTASIS [None]
  - LOW TURNOVER OSTEOPATHY [None]
  - ONYCHOMYCOSIS [None]
  - INSOMNIA [None]
  - BONE DENSITY INCREASED [None]
  - FRACTURE MALUNION [None]
  - ASPIRATION [None]
